FAERS Safety Report 24867815 (Version 1)
Quarter: 2025Q1

REPORT INFORMATION
  Report Type: Spontaneous
  Country: CN (occurrence: CN)
  Receive Date: 20250121
  Receipt Date: 20250121
  Transmission Date: 20250409
  Serious: Yes (Other)
  Sender: BAYER HEALTHCARE PHARMACEUTICALS INC.
  Company Number: CN-BAYER-2025A006430

PATIENT
  Age: 70 Year
  Sex: Female

DRUGS (15)
  1. ASPIRIN [Interacting]
     Active Substance: ASPIRIN
     Indication: Antiplatelet therapy
  2. ASPIRIN [Interacting]
     Active Substance: ASPIRIN
     Indication: Cerebrovascular accident prophylaxis
  3. MOXIFLOXACIN [Suspect]
     Active Substance: MOXIFLOXACIN
     Indication: Pneumonitis
  4. CLOPIDOGREL [Interacting]
     Active Substance: CLOPIDOGREL BISULFATE
     Indication: Antiplatelet therapy
  5. CLOPIDOGREL [Interacting]
     Active Substance: CLOPIDOGREL BISULFATE
     Indication: Cerebrovascular accident prophylaxis
  6. ATORVASTATIN [Concomitant]
     Active Substance: ATORVASTATIN
     Indication: Lipids abnormal
  7. ATORVASTATIN [Concomitant]
     Active Substance: ATORVASTATIN
     Indication: Arteriosclerosis
  8. BUTYLPHTHALIDE [Concomitant]
     Active Substance: BUTYLPHTHALIDE
     Indication: Cardiovascular disorder
  9. BUTYLPHTHALIDE [Concomitant]
     Active Substance: BUTYLPHTHALIDE
     Indication: Metabolic disorder
  10. UROKINASE [Concomitant]
     Active Substance: UROKINASE
     Indication: Cardiovascular disorder
  11. BETAHISTINE [Concomitant]
     Active Substance: BETAHISTINE
     Indication: Prophylaxis
  12. FIBRINOLYSIN [Concomitant]
     Active Substance: FIBRINOLYSIN
     Indication: Hypercoagulation
  13. CEFOPERAZONE SODIUM\SULBACTAM SODIUM [Concomitant]
     Active Substance: CEFOPERAZONE SODIUM\SULBACTAM SODIUM
     Indication: Pneumonitis
  14. LINEZOLID [Concomitant]
     Active Substance: LINEZOLID
     Indication: Pneumonitis
  15. MEROPENEM [Concomitant]
     Active Substance: MEROPENEM
     Indication: Pneumonitis

REACTIONS (3)
  - Gastrointestinal haemorrhage [None]
  - Thalamus haemorrhage [None]
  - Drug ineffective [None]
